FAERS Safety Report 22816208 (Version 4)
Quarter: 2024Q2

REPORT INFORMATION
  Report Type: Spontaneous
  Country: US (occurrence: US)
  Receive Date: 20230811
  Receipt Date: 20240419
  Transmission Date: 20240716
  Serious: Yes (Disabling, Other)
  Sender: FDA-Public Use
  Company Number: US-SA-SAC20230809000122

PATIENT
  Age: 53 Year
  Sex: Female

DRUGS (3)
  1. AUBAGIO [Suspect]
     Active Substance: TERIFLUNOMIDE
     Indication: Multiple sclerosis
     Dosage: UNK
     Route: 065
  2. GEMTESA [Suspect]
     Active Substance: VIBEGRON
     Dosage: UNK
  3. BISACODYL [Concomitant]
     Active Substance: BISACODYL

REACTIONS (30)
  - Loss of personal independence in daily activities [Unknown]
  - Multiple sclerosis relapse [Unknown]
  - Dizziness [Unknown]
  - Muscle spasms [Unknown]
  - Back pain [Unknown]
  - Dysstasia [Unknown]
  - Hypertonic bladder [Unknown]
  - Condition aggravated [Unknown]
  - Myoclonus [Unknown]
  - Hypoaesthesia [Unknown]
  - Paraesthesia [Unknown]
  - Pain in extremity [Unknown]
  - Neuropathy peripheral [Unknown]
  - Constipation [Unknown]
  - Anal incontinence [Unknown]
  - Aphasia [Unknown]
  - Urinary incontinence [Unknown]
  - Memory impairment [Unknown]
  - Disturbance in attention [Unknown]
  - Balance disorder [Unknown]
  - Gait disturbance [Unknown]
  - Fatigue [Unknown]
  - Depression [Unknown]
  - Muscle spasticity [Unknown]
  - Insomnia [Unknown]
  - Neurogenic bladder [Unknown]
  - Alopecia [Unknown]
  - Somnolence [Unknown]
  - Musculoskeletal discomfort [Unknown]
  - Stress [Unknown]

NARRATIVE: CASE EVENT DATE: 20230401
